FAERS Safety Report 15565900 (Version 1)
Quarter: 2018Q4

REPORT INFORMATION
  Report Type: Report from Study
  Country: AU (occurrence: AU)
  Receive Date: 20181030
  Receipt Date: 20181030
  Transmission Date: 20190205
  Serious: Yes (Other)
  Sender: FDA-Public Use
  Company Number: AU-MYLANLABS-2018M1078805

PATIENT

DRUGS (3)
  1. CANNABIDIOL [Interacting]
     Active Substance: CANNABIDIOL
     Dosage: INCREASED AT WEEKLY OR LONGER INTERVALS TILL TARGET DOSE OF 25 MG/KG/DAY WAS ACHIEVED
     Route: 065
  2. CANNABIDIOL [Interacting]
     Active Substance: CANNABIDIOL
     Indication: EPILEPSY
     Dosage: IN TWO DIVIDED DOSES
     Route: 065
  3. PHENYTOIN. [Suspect]
     Active Substance: PHENYTOIN
     Indication: EPILEPSY
     Route: 065

REACTIONS (2)
  - Drug interaction [Unknown]
  - Drug level increased [Unknown]
